FAERS Safety Report 9685557 (Version 3)
Quarter: 2014Q1

REPORT INFORMATION
  Report Type: Spontaneous
  Country: US (occurrence: US)
  Receive Date: 20131113
  Receipt Date: 20140129
  Transmission Date: 20141002
  Serious: No
  Sender: FDA-Public Use
  Company Number: US-009507513-1311USA004772

PATIENT
  Age: 62 Year
  Sex: Female
  Weight: 72.56 kg

DRUGS (6)
  1. PEGINTRON [Suspect]
     Indication: HEPATITIS C
     Dosage: 0.5 CC, QW
     Route: 058
     Dates: start: 20131018
  2. RIBAPAK [Suspect]
     Indication: HEPATITIS C
     Dosage: 600 MG/DAY; BID (TWICE A DAY)
     Route: 048
     Dates: start: 20131018
  3. RIBAPAK [Suspect]
     Dosage: 1000 UNK, UNK
     Route: 048
  4. LANTUS [Concomitant]
     Dosage: 1000 U PER CC; DOSE 31 U
  5. METFORMIN [Concomitant]
     Dosage: 2 AM AND PM
  6. GLIPIZIDE [Concomitant]
     Dosage: 1 DF, QD

REACTIONS (11)
  - Eating disorder [Unknown]
  - Weight decreased [Unknown]
  - Decreased appetite [Unknown]
  - Anaemia [Unknown]
  - Haemoglobin decreased [Unknown]
  - Dysgeusia [Unknown]
  - Diarrhoea [Unknown]
  - Vomiting [Unknown]
  - Blood glucose decreased [Unknown]
  - Hypoglycaemia [Unknown]
  - Dehydration [Unknown]
